FAERS Safety Report 12589903 (Version 1)
Quarter: 2016Q3

REPORT INFORMATION
  Report Type: Spontaneous
  Country: JP (occurrence: JP)
  Receive Date: 20160725
  Receipt Date: 20160725
  Transmission Date: 20161109
  Serious: Yes (Other)
  Sender: FDA-Public Use
  Company Number: JP-PFIZER INC-2016356267

PATIENT
  Age: 84 Year
  Sex: Male

DRUGS (1)
  1. NOVASTAN [Suspect]
     Active Substance: ARGATROBAN
     Indication: TRANSIENT ISCHAEMIC ATTACK
     Dosage: 6 DF, 1X/DAY
     Route: 051

REACTIONS (1)
  - Cerebral infarction [Unknown]
